FAERS Safety Report 6879191-9 (Version None)
Quarter: 2010Q3

REPORT INFORMATION
  Report Type: 
  Country: None (occurrence: None)
  Receive Date: 20100728
  Receipt Date: 20100720
  Transmission Date: 20110219
  Serious: Yes (Hospitalization, Other)
  Sender: FDA-Public Use
  Company Number: BR-PFIZER INC-2010054365

PATIENT
  Age: 44 Year
  Sex: Male
  Weight: 65 kg

DRUGS (4)
  1. ZIPRASIDONE HCL [Suspect]
     Indication: SCHIZOPHRENIA
     Dosage: 60 MG, 2X/DAY
     Dates: start: 20040901, end: 20051218
  2. METFORMIN HCL [Suspect]
     Indication: DIABETES MELLITUS
     Dosage: 850 MG, 1X/DAY
     Dates: start: 20051003
  3. OMEPRAZOLE [Concomitant]
     Indication: ABDOMINAL DISCOMFORT
     Dosage: 20 MG, 1X/DAY
  4. LORAZEPAM [Concomitant]
     Indication: SCHIZOPHRENIA
     Dosage: 1.5MG/DAY
     Dates: start: 20040901

REACTIONS (6)
  - ANXIETY [None]
  - DEPRESSION [None]
  - DIABETES MELLITUS [None]
  - DRUG INEFFECTIVE [None]
  - SUICIDAL IDEATION [None]
  - WITHDRAWAL SYNDROME [None]
